FAERS Safety Report 4470063-6 (Version None)
Quarter: 2004Q3

REPORT INFORMATION
  Report Type: 
  Country: None (occurrence: None)
  Receive Date: 20040910
  Receipt Date: 20040617
  Transmission Date: 20050211
  Serious: No
  Sender: FDA-Public Use
  Company Number: 2004219892US

PATIENT
  Age: 86 Year
  Sex: Female
  Weight: 63.5 kg

DRUGS (1)
  1. BEXTRA [Suspect]
     Indication: ARTHRITIS
     Dosage: 10MG, QD
     Dates: start: 20040617

REACTIONS (3)
  - ASTHENIA [None]
  - FEELING ABNORMAL [None]
  - PALPITATIONS [None]
